FAERS Safety Report 5030240-2 (Version None)
Quarter: 2006Q2

REPORT INFORMATION
  Report Type: 
  Country: None (occurrence: None)
  Receive Date: 20060620
  Receipt Date: 20060609
  Transmission Date: 20061013
  Serious: Yes (Other)
  Sender: FDA-Public Use
  Company Number: US-ROCHE-451531

PATIENT
  Age: 68 Year
  Sex: Male

DRUGS (3)
  1. PEGASYS [Suspect]
     Dosage: ROUTE REPORTED AS INJECTABLE.
     Route: 050
     Dates: start: 20060101
  2. COPEGUS [Suspect]
     Route: 048
     Dates: start: 20060101
  3. PROCRIT [Concomitant]

REACTIONS (2)
  - CONDITION AGGRAVATED [None]
  - MELANOCYTIC NAEVUS [None]
